FAERS Safety Report 8967109 (Version 1)
Quarter: 2012Q4

REPORT INFORMATION
  Report Type: 
  Country: US (occurrence: US)
  Receive Date: 20121217
  Receipt Date: 20121217
  Transmission Date: 20130627
  Serious: Yes (Hospitalization)
  Sender: FDA-Public Use
  Company Number: PHHO2009US13169

PATIENT
  Age: 64 Year
  Sex: Female
  Weight: 96.6 kg

DRUGS (22)
  1. AFINITOR [Suspect]
     Indication: GLIOBLASTOMA MULTIFORME
     Dosage: 10 mg, QD
     Route: 048
     Dates: start: 20090923, end: 20091019
  2. AFINITOR [Suspect]
     Dosage: no treatment
     Dates: start: 20091020, end: 20091105
  3. AFINITOR [Suspect]
     Dosage: 10 mg, QD
     Dates: start: 20091106
  4. AVASTIN [Suspect]
     Indication: GLIOBLASTOMA MULTIFORME
     Dosage: 880 mg, UNK
     Route: 048
     Dates: start: 20090714, end: 20090826
  5. AVASTIN [Suspect]
     Dosage: No treatment
     Dates: start: 20090827, end: 20090922
  6. AVASTIN [Suspect]
     Dosage: 880 mg, UNK
     Route: 048
     Dates: start: 20090923
  7. TEMOZOLOMIDE [Suspect]
     Indication: GLIOBLASTOMA MULTIFORME
     Dosage: 150 mg, UNK
     Dates: start: 20090714, end: 20090816
  8. RADIATION THERAPY [Concomitant]
     Indication: GLIOBLASTOMA MULTIFORME
     Dosage: 60 Cy in 30 fractions
     Route: 048
     Dates: start: 20090714, end: 20090816
  9. OMEPRAZOLE [Concomitant]
     Route: 048
  10. SANCTURA [Concomitant]
     Route: 048
  11. FOSAMAX [Concomitant]
     Dosage: 70 mg, QW
     Route: 048
  12. AMBIEN [Concomitant]
     Dosage: 5 mg, QHS
     Route: 048
     Dates: start: 20090618
  13. ZOFRAN [Concomitant]
     Dosage: 4 mg, PRN
     Route: 048
     Dates: start: 20090708
  14. FUROSEMIDE [Concomitant]
     Dosage: 20 mg, UNK
     Dates: start: 20090708
  15. ZOCOR [Concomitant]
     Dosage: 40 mg, QD
     Route: 048
     Dates: start: 20090911
  16. NEURONTIN [Concomitant]
     Dosage: 100 mg, TID
     Route: 048
     Dates: start: 20091006
  17. NORVASC [Concomitant]
     Dosage: 5 mg, QD
     Route: 048
     Dates: start: 20091021
  18. CIPRO [Concomitant]
     Dosage: 500 mg, BID
     Route: 048
     Dates: start: 20091021
  19. DEXAMETHASONE [Concomitant]
     Dosage: 2 mg, BID
     Route: 048
     Dates: start: 20090708
  20. FLONASE [Concomitant]
     Dosage: UNK
     Dates: start: 20091024
  21. ALLEGRA [Concomitant]
     Dosage: 180 mg, QD
     Route: 048
     Dates: start: 20091024
  22. MYCOSTATIN [Concomitant]
     Dosage: 500000 U, QID
     Dates: start: 20091024

REACTIONS (3)
  - Thrombosis [Recovered/Resolved with Sequelae]
  - Pulmonary embolism [Recovered/Resolved with Sequelae]
  - Dyspnoea [Unknown]
